FAERS Safety Report 9058044 (Version 1)
Quarter: 2013Q1

REPORT INFORMATION
  Report Type: Spontaneous
  Country: US (occurrence: US)
  Receive Date: 20130211
  Receipt Date: 20130211
  Transmission Date: 20140127
  Serious: Yes (Other)
  Sender: FDA-Public Use
  Company Number: US-BIOGENIDEC-2013BI012027

PATIENT
  Sex: Female

DRUGS (1)
  1. AVONEX [Suspect]
     Indication: MULTIPLE SCLEROSIS
     Route: 030

REACTIONS (15)
  - Breast cancer [Unknown]
  - Sedation [Unknown]
  - Hypertension [Unknown]
  - Coordination abnormal [Unknown]
  - Gait disturbance [Unknown]
  - Balance disorder [Unknown]
  - Automatic bladder [Unknown]
  - Irritable bowel syndrome [Unknown]
  - Temperature intolerance [Unknown]
  - Fatigue [Unknown]
  - Muscle spasticity [Unknown]
  - Insomnia [Unknown]
  - Influenza like illness [Unknown]
  - Pain [Unknown]
  - Injection site pain [Unknown]
